FAERS Safety Report 15947501 (Version 1)
Quarter: 2019Q1

REPORT INFORMATION
  Report Type: Spontaneous
  Country: US (occurrence: US)
  Receive Date: 20190211
  Receipt Date: 20190211
  Transmission Date: 20190417
  Serious: No
  Sender: FDA-Public Use
  Company Number: US-TARO-2018TAR00664

PATIENT
  Age: 15 Year
  Sex: Male
  Weight: 108.84 kg

DRUGS (4)
  1. BETAMETHASONE VALERATE CREAM USP 0.1% [Suspect]
     Active Substance: BETAMETHASONE VALERATE
     Indication: ECZEMA
     Dosage: UNK UNK, 1X/DAY
     Route: 061
     Dates: start: 20180829, end: 20180902
  2. MINOCYCLINE [Concomitant]
     Active Substance: MINOCYCLINE\MINOCYCLINE HYDROCHLORIDE
     Dosage: 100 MG, 2X/DAY
     Route: 048
  3. EPICERAM [Concomitant]
     Active Substance: DEVICE
     Dosage: UNK, 1X/DAY
     Route: 061
     Dates: start: 201809
  4. BETAMETHASONE VALERATE CREAM USP 0.1% [Suspect]
     Active Substance: BETAMETHASONE VALERATE
     Dosage: UNK UNK, EVERY 48 HOURS (GENERALLY EVERY OTHER DAY)
     Route: 061
     Dates: start: 20180903

REACTIONS (1)
  - Pollakiuria [Not Recovered/Not Resolved]

NARRATIVE: CASE EVENT DATE: 2018
